FAERS Safety Report 20186483 (Version 12)
Quarter: 2022Q1

REPORT INFORMATION
  Report Type: Report from Study
  Country: US (occurrence: US)
  Receive Date: 20211215
  Receipt Date: 20220202
  Transmission Date: 20220423
  Serious: No
  Sender: FDA-Public Use
  Company Number: US-NOVARTISTESTPH-NVSC2021US287445

PATIENT
  Sex: Female
  Weight: 44.444 kg

DRUGS (4)
  1. TREPROSTINIL [Suspect]
     Active Substance: TREPROSTINIL
     Indication: Pulmonary arterial hypertension
     Dosage: UNK UNK, CONT(06 NG/KG/MIN)
     Route: 042
     Dates: start: 20211208
  2. TREPROSTINIL [Suspect]
     Active Substance: TREPROSTINIL
     Dosage: UNK, CONT (10 NG/KG/MIN)
     Route: 042
     Dates: start: 20211208
  3. LETAIRIS [Concomitant]
     Active Substance: AMBRISENTAN
     Indication: Product used for unknown indication
     Dosage: UNK
     Route: 065
  4. TADALAFIL [Concomitant]
     Active Substance: TADALAFIL
     Indication: Product used for unknown indication
     Dosage: UNK
     Route: 065

REACTIONS (17)
  - Pain [Not Recovered/Not Resolved]
  - Mastication disorder [Unknown]
  - Weight increased [Unknown]
  - Oedema peripheral [Unknown]
  - Swelling face [Unknown]
  - Circumoral swelling [Unknown]
  - Periorbital oedema [Unknown]
  - Peripheral coldness [Unknown]
  - Gingival discolouration [Unknown]
  - Headache [Recovering/Resolving]
  - Diarrhoea [Recovering/Resolving]
  - Myalgia [Unknown]
  - Pain in jaw [Recovering/Resolving]
  - Nausea [Unknown]
  - Dizziness [Unknown]
  - Dyspnoea exertional [Not Recovered/Not Resolved]
  - Oedema [Unknown]
